FAERS Safety Report 20320380 (Version 1)
Quarter: 2022Q1

REPORT INFORMATION
  Report Type: Report from Study
  Country: GB (occurrence: GB)
  Receive Date: 20220111
  Receipt Date: 20220111
  Transmission Date: 20220423
  Serious: Yes (Death)
  Sender: FDA-Public Use
  Company Number: GB-ABBVIE-22K-167-4228528-00

PATIENT
  Age: 16 Year
  Sex: Male

DRUGS (1)
  1. VENETOCLAX [Suspect]
     Active Substance: VENETOCLAX
     Indication: Lymphoma
     Dosage: FOUR DOSES
     Route: 048

REACTIONS (2)
  - Malignant neoplasm progression [Fatal]
  - Off label use [Unknown]
